FAERS Safety Report 16922210 (Version 1)
Quarter: 2019Q4

REPORT INFORMATION
  Report Type: Spontaneous
  Country: US (occurrence: US)
  Receive Date: 20191015
  Receipt Date: 20191015
  Transmission Date: 20200122
  Serious: No
  Sender: FDA-Public Use
  Company Number: US-BIOGEN-2019BI00796792

PATIENT
  Sex: Female

DRUGS (4)
  1. TECFIDERA [Suspect]
     Active Substance: DIMETHYL FUMARATE
     Indication: MULTIPLE SCLEROSIS
     Dosage: TAKE 1 CAPSULE (240MG)? BY MOUTH TWICE DAILY
     Route: 048
  2. MYRBETRIQ [Concomitant]
     Active Substance: MIRABEGRON
     Route: 065
  3. BIOTIN [Concomitant]
     Active Substance: BIOTIN
     Route: 065
  4. MIRENA [Concomitant]
     Active Substance: LEVONORGESTREL
     Route: 065

REACTIONS (2)
  - Flushing [Recovered/Resolved]
  - Product dose omission [Unknown]
